FAERS Safety Report 16072715 (Version 1)
Quarter: 2019Q1

REPORT INFORMATION
  Report Type: Spontaneous
  Country: US (occurrence: US)
  Receive Date: 20190213
  Receipt Date: 20190213
  Transmission Date: 20190418
  Serious: Yes (Disabling, Other)
  Sender: FDA-Public Use
  Company Number: None

PATIENT
  Sex: Female
  Weight: 51.75 kg

DRUGS (13)
  1. CIPRO [Suspect]
     Active Substance: CIPROFLOXACIN HYDROCHLORIDE
     Indication: PROPHYLAXIS URINARY TRACT INFECTION
     Dosage: ?          QUANTITY:1 TABLET(S);?
     Route: 048
     Dates: start: 19880101, end: 20151231
  2. VITAMIN C [Concomitant]
     Active Substance: ASCORBIC ACID
  3. CIPRO [Suspect]
     Active Substance: CIPROFLOXACIN HYDROCHLORIDE
     Indication: URINARY TRACT INFECTION
     Dosage: ?          QUANTITY:1 TABLET(S);?
     Route: 048
     Dates: start: 19880101, end: 20151231
  4. CIPRO [Suspect]
     Active Substance: CIPROFLOXACIN HYDROCHLORIDE
     Indication: LIMB INJURY
     Dosage: ?          QUANTITY:1 TABLET(S);?
     Route: 048
     Dates: start: 19880101, end: 20151231
  5. BESIFLOXACIN [Suspect]
     Active Substance: BESIFLOXACIN
  6. VITAMIN D [Concomitant]
     Active Substance: CHOLECALCIFEROL
  7. COQ10 [Concomitant]
     Active Substance: UBIDECARENONE
  8. DITROPAN [Concomitant]
     Active Substance: OXYBUTYNIN CHLORIDE
  9. CIPROFLOXACIN. [Suspect]
     Active Substance: CIPROFLOXACIN
  10. VITAMIN B [Concomitant]
     Active Substance: VITAMIN B
  11. MAGNESIUM [Concomitant]
     Active Substance: MAGNESIUM
  12. LDN [Concomitant]
     Active Substance: NALTREXONE
  13. BIOTIN [Concomitant]
     Active Substance: BIOTIN

REACTIONS (7)
  - Tendon disorder [None]
  - Multiple sclerosis [None]
  - Muscle atrophy [None]
  - Temperature intolerance [None]
  - Tendon rupture [None]
  - Neuropathy peripheral [None]
  - Anxiety [None]
